FAERS Safety Report 6198607-7 (Version None)
Quarter: 2009Q2

REPORT INFORMATION
  Report Type: 
  Country: None (occurrence: None)
  Receive Date: 20090519
  Receipt Date: 20090519
  Transmission Date: 20091009
  Serious: Yes (Hospitalization)
  Sender: FDA-Public Use
  Company Number: None

PATIENT
  Sex: Female
  Weight: 50.8029 kg

DRUGS (1)
  1. MOVIPREP [Suspect]
     Indication: COLONOSCOPY
     Dosage: 1 LITER TWICE PO
     Route: 048
     Dates: start: 20090513, end: 20090513

REACTIONS (9)
  - CYANOSIS [None]
  - DEHYDRATION [None]
  - FALL [None]
  - HYPERSENSITIVITY [None]
  - INCOHERENT [None]
  - JOINT INJURY [None]
  - LIMB INJURY [None]
  - LOSS OF CONSCIOUSNESS [None]
  - NAUSEA [None]
